FAERS Safety Report 6524055-3 (Version None)
Quarter: 2009Q4

REPORT INFORMATION
  Report Type: 
  Country: None (occurrence: None)
  Receive Date: 20091230
  Receipt Date: 20091230
  Transmission Date: 20100525
  Serious: Yes (Other)
  Sender: FDA-Public Use
  Company Number: None

PATIENT
  Sex: Female
  Weight: 62.1428 kg

DRUGS (1)
  1. CHANTIX [Suspect]
     Indication: SMOKING CESSATION THERAPY
     Dosage: 1 PILL 2 TIMES PO
     Route: 048
     Dates: start: 20090815, end: 20090917

REACTIONS (4)
  - EYE SWELLING [None]
  - LIP SWELLING [None]
  - PHARYNGEAL OEDEMA [None]
  - SWELLING FACE [None]
